FAERS Safety Report 5728605-6 (Version None)
Quarter: 2008Q2

REPORT INFORMATION
  Report Type: 
  Country: None (occurrence: None)
  Receive Date: 20080502
  Receipt Date: 20080502
  Transmission Date: 20081010
  Serious: Yes (Other)
  Sender: FDA-Public Use
  Company Number: None

PATIENT
  Sex: Female
  Weight: 68.0396 kg

DRUGS (2)
  1. LYRICA [Suspect]
     Indication: COMPLEX REGIONAL PAIN SYNDROME
     Dosage: 1 CAPSULE 2X A DAY FOR A WEEK PO; 1 CAPSULE 3X A DAY PO
     Route: 048
     Dates: start: 20080416, end: 20080420
  2. LYRICA [Suspect]
     Indication: FIBROMYALGIA
     Dosage: 1 CAPSULE 2X A DAY FOR A WEEK PO; 1 CAPSULE 3X A DAY PO
     Route: 048
     Dates: start: 20080416, end: 20080420

REACTIONS (7)
  - ANOREXIA [None]
  - DELUSION [None]
  - DIARRHOEA [None]
  - DIZZINESS [None]
  - HALLUCINATION, VISUAL [None]
  - SWELLING [None]
  - VOMITING [None]
